FAERS Safety Report 24544815 (Version 1)
Quarter: 2024Q4

REPORT INFORMATION
  Report Type: Spontaneous
  Country: US (occurrence: US)
  Receive Date: 20241024
  Receipt Date: 20241024
  Transmission Date: 20250115
  Serious: Yes (Other)
  Sender: CELLTRION
  Company Number: US-CELLTRION INC.-2024US025631

PATIENT

DRUGS (1)
  1. INFLIXIMAB [Suspect]
     Active Substance: INFLIXIMAB
     Indication: Congenital ectopic pancreas
     Dosage: UNK (SEVERAL YEARS)

REACTIONS (2)
  - Systemic inflammatory response syndrome [Recovered/Resolved]
  - Therapeutic response unexpected [Unknown]
